FAERS Safety Report 23878713 (Version 1)
Quarter: 2024Q2

REPORT INFORMATION
  Report Type: Spontaneous
  Country: US (occurrence: None)
  Receive Date: 20240520
  Receipt Date: 20240520
  Transmission Date: 20240716
  Serious: No
  Sender: FDA-Public Use
  Company Number: None

PATIENT
  Age: 68 Year
  Sex: Male

DRUGS (1)
  1. AMBRISENTAN [Suspect]
     Active Substance: AMBRISENTAN
     Indication: Pulmonary hypertension
     Dosage: 10 MG DAILY ORAL?
     Route: 048

REACTIONS (11)
  - Cough [None]
  - Productive cough [None]
  - Dyspnoea exertional [None]
  - Depression [None]
  - Disturbance in attention [None]
  - Blood cholesterol increased [None]
  - Peripheral swelling [None]
  - Nasal congestion [None]
  - Sinus disorder [None]
  - Erythema [None]
  - Flushing [None]

NARRATIVE: CASE EVENT DATE: 20240520
